FAERS Safety Report 14232230 (Version 2)
Quarter: 2018Q3

REPORT INFORMATION
  Report Type: Spontaneous
  Country: FR (occurrence: FR)
  Receive Date: 20171128
  Receipt Date: 20180809
  Transmission Date: 20181010
  Serious: Yes (Hospitalization)
  Sender: FDA-Public Use
  Company Number: FR-INDIVIOR LIMITED-INDV-106512-2017

PATIENT
  Age: 34 Year
  Sex: Male

DRUGS (7)
  1. ALCOHOL. [Suspect]
     Active Substance: ALCOHOL
     Indication: PRODUCT USED FOR UNKNOWN INDICATION
     Dosage: 32 UNITS PER DAY
     Route: 048
     Dates: start: 1998
  2. NICOTINE. [Suspect]
     Active Substance: NICOTINE
     Indication: PRODUCT USED FOR UNKNOWN INDICATION
     Dosage: ONE PACK PER DAY
     Route: 055
     Dates: start: 1996
  3. SUBUTEX [Suspect]
     Active Substance: BUPRENORPHINE HYDROCHLORIDE
     Dosage: 8 MG, QD
     Route: 065
     Dates: start: 2017, end: 2017
  4. SUBUTEX [Suspect]
     Active Substance: BUPRENORPHINE HYDROCHLORIDE
     Dosage: REDUCED BETWEEN 2 AND 4 MG
     Route: 060
     Dates: end: 201706
  5. SUBUTEX [Suspect]
     Active Substance: BUPRENORPHINE HYDROCHLORIDE
     Indication: PRODUCT USED FOR UNKNOWN INDICATION
     Dosage: UPTO 8MG PER DAY
     Route: 060
     Dates: start: 2014, end: 201611
  6. ALCOHOL. [Suspect]
     Active Substance: ALCOHOL
     Dosage: 6 TO 8 UNITS PER DAY
     Route: 048
     Dates: start: 2017
  7. SUBUTEX [Suspect]
     Active Substance: BUPRENORPHINE HYDROCHLORIDE
     Dosage: UPTO 8 MG PER DAY;
     Route: 060
     Dates: start: 2017

REACTIONS (7)
  - Drug dependence [Recovered/Resolved]
  - Alcohol abuse [Recovering/Resolving]
  - Drug abuse [Not Recovered/Not Resolved]
  - Intentional underdose [Unknown]
  - Substance abuser [Not Recovered/Not Resolved]
  - Intentional product misuse [Recovering/Resolving]
  - Drug abuse [Recovered/Resolved]

NARRATIVE: CASE EVENT DATE: 2017
